FAERS Safety Report 7068127-6 (Version None)
Quarter: 2010Q4

REPORT INFORMATION
  Report Type: 
  Country: None (occurrence: None)
  Receive Date: 20101028
  Receipt Date: 20101018
  Transmission Date: 20110411
  Serious: Yes (Other)
  Sender: FDA-Public Use
  Company Number: PHHY2010DE70559

PATIENT
  Sex: Male
  Weight: 114 kg

DRUGS (1)
  1. SANDOSTATIN LAR [Suspect]
     Indication: NEUROENDOCRINE CARCINOMA
     Dosage: 30 MG, QMO
     Route: 030
     Dates: start: 20050504, end: 20101014

REACTIONS (6)
  - DYSPNOEA [None]
  - FEELING HOT [None]
  - GENERALISED ERYTHEMA [None]
  - HEPATIC ENZYME INCREASED [None]
  - HYPERSENSITIVITY [None]
  - HYPERURICAEMIA [None]
